FAERS Safety Report 8473162-7 (Version None)
Quarter: 2012Q2

REPORT INFORMATION
  Report Type: 
  Country: None (occurrence: None)
  Receive Date: 20120627
  Receipt Date: 20120621
  Transmission Date: 20120825
  Serious: Yes (Death)
  Sender: FDA-Public Use
  Company Number: US-PFIZER INC-2012122474

PATIENT
  Sex: Male

DRUGS (1)
  1. ZYVOX [Suspect]
     Indication: SKIN ULCER
     Dosage: UNK
     Dates: start: 20110324

REACTIONS (1)
  - MYOCARDIAL INFARCTION [None]
